FAERS Safety Report 11502012 (Version 3)
Quarter: 2017Q4

REPORT INFORMATION
  Report Type: Spontaneous
  Country: PL (occurrence: PL)
  Receive Date: 20150914
  Receipt Date: 20171227
  Transmission Date: 20180320
  Serious: Yes (Other)
  Sender: FDA-Public Use
  Company Number: PL-TEVA-591701ISR

PATIENT
  Sex: Female
  Weight: 73 kg

DRUGS (4)
  1. CYCLOPHOSPHAMIDE. [Suspect]
     Active Substance: CYCLOPHOSPHAMIDE
     Indication: LUNG NEOPLASM MALIGNANT
     Route: 042
     Dates: start: 20150512, end: 20150512
  2. VINCRISTINE TEVA [Suspect]
     Active Substance: VINCRISTINE
     Indication: LUNG NEOPLASM MALIGNANT
     Route: 042
     Dates: start: 20150512, end: 20150512
  3. DOXORUBICIN HYDROCHLORIDE. [Suspect]
     Active Substance: DOXORUBICIN HYDROCHLORIDE
     Indication: LUNG NEOPLASM MALIGNANT
     Route: 042
     Dates: start: 20150512, end: 20150512
  4. ADRIAMYCIN [Suspect]
     Active Substance: DOXORUBICIN HYDROCHLORIDE
     Indication: LUNG NEOPLASM MALIGNANT
     Route: 042
     Dates: start: 20150512, end: 20150512

REACTIONS (3)
  - Product use in unapproved indication [Unknown]
  - Neutropenia [Recovered/Resolved]
  - Off label use [Unknown]
